FAERS Safety Report 6244918-6 (Version None)
Quarter: 2009Q2

REPORT INFORMATION
  Report Type: 
  Country: None (occurrence: None)
  Receive Date: 20090623
  Receipt Date: 20090623
  Transmission Date: 20091009
  Serious: Yes (Death)
  Sender: FDA-Public Use
  Company Number: None

PATIENT

DRUGS (1)
  1. LINDANE [Suspect]

REACTIONS (3)
  - CONVULSION [None]
  - HYPOXIA [None]
  - RESPIRATORY ACIDOSIS [None]
